FAERS Safety Report 8189187-5 (Version None)
Quarter: 2012Q1

REPORT INFORMATION
  Report Type: 
  Country: None (occurrence: None)
  Receive Date: 20120306
  Receipt Date: 20120306
  Transmission Date: 20120608
  Serious: No
  Sender: FDA-Public Use
  Company Number: None

PATIENT
  Age: 78 Year
  Sex: Female
  Weight: 90.7194 kg

DRUGS (1)
  1. AMLODIPINE [Suspect]
     Indication: HYPERTENSION
     Dosage: 5 MG QDAY PO EXP DATE 1/23/2013
     Route: 048

REACTIONS (4)
  - GINGIVAL SWELLING [None]
  - EATING DISORDER [None]
  - MUSCLE SPASMS [None]
  - HEADACHE [None]
